FAERS Safety Report 21405957 (Version 1)
Quarter: 2022Q4

REPORT INFORMATION
  Report Type: Spontaneous
  Country: US (occurrence: US)
  Receive Date: 20221004
  Receipt Date: 20221004
  Transmission Date: 20230112
  Serious: Yes (Other)
  Sender: FDA-Public Use
  Company Number: US-SUN PHARMACEUTICAL INDUSTRIES LTD-2022R1-323148

PATIENT
  Age: 80 Year
  Sex: Male

DRUGS (2)
  1. SUNITINIB [Suspect]
     Active Substance: SUNITINIB
     Indication: Spinal stenosis
     Dosage: UNK
     Route: 065
     Dates: start: 200705
  2. ZOLEDRONIC ACID [Concomitant]
     Active Substance: ZOLEDRONIC ACID
     Indication: Spinal stenosis
     Dosage: UNK
     Route: 065
     Dates: start: 200705

REACTIONS (1)
  - Osteonecrosis of external auditory canal [Unknown]
